FAERS Safety Report 8272615-4 (Version None)
Quarter: 2012Q2

REPORT INFORMATION
  Report Type: 
  Country: None (occurrence: None)
  Receive Date: 20120410
  Receipt Date: 20120316
  Transmission Date: 20120825
  Serious: Yes (Hospitalization)
  Sender: FDA-Public Use
  Company Number: PHHY2012AU023880

PATIENT
  Sex: Male

DRUGS (2)
  1. CLOZAPINE [Suspect]
     Dates: start: 20080101, end: 20110922
  2. CLOZARIL [Suspect]
     Dosage: 12.5 MG
     Dates: start: 20030131

REACTIONS (12)
  - SPINAL CORD INJURY [None]
  - PSYCHOTIC DISORDER [None]
  - HAEMATOCRIT DECREASED [None]
  - MEAN PLATELET VOLUME INCREASED [None]
  - NEUTROPHIL COUNT DECREASED [None]
  - NEUTROPHIL COUNT INCREASED [None]
  - RED CELL DISTRIBUTION WIDTH INCREASED [None]
  - HAEMOGLOBIN DECREASED [None]
  - WHITE BLOOD CELL COUNT DECREASED [None]
  - RED BLOOD CELL COUNT DECREASED [None]
  - DRUG INEFFECTIVE [None]
  - THROMBOCYTOPENIA [None]
